APPROVED DRUG PRODUCT: AZTREONAM
Active Ingredient: AZTREONAM
Strength: 2GM/VIAL
Dosage Form/Route: INJECTABLE;INJECTION
Application: A065439 | Product #003 | TE Code: AP
Applicant: FRESENIUS KABI USA LLC
Approved: Jun 18, 2010 | RLD: No | RS: No | Type: RX